FAERS Safety Report 8363407-6 (Version None)
Quarter: 2012Q2

REPORT INFORMATION
  Report Type: 
  Country: None (occurrence: None)
  Receive Date: 20120516
  Receipt Date: 20120207
  Transmission Date: 20120825
  Serious: Yes (Hospitalization, Other)
  Sender: FDA-Public Use
  Company Number: US-ALEXION-A201101408

PATIENT
  Sex: Male

DRUGS (7)
  1. COUMADIN [Suspect]
     Dosage: 7 MG QD
  2. PLAVIX [Concomitant]
     Dosage: 75 MG QD
  3. ASPIRIN [Concomitant]
     Dosage: 81 MG QD
  4. SOLIRIS [Suspect]
     Indication: PAROXYSMAL NOCTURNAL HAEMOGLOBINURIA
     Dosage: UNK
     Route: 042
  5. FOLIC ACID [Concomitant]
     Dosage: 1 MG QD
  6. LIPITOR [Concomitant]
     Dosage: 10 MG QD
  7. EXFORGE HCT [Concomitant]
     Dosage: 5/169/12.5 MG QD

REACTIONS (10)
  - GASTROINTESTINAL HAEMORRHAGE [None]
  - CAROTID ARTERY OCCLUSION [None]
  - CARDIAC DISORDER [None]
  - EROSIVE OESOPHAGITIS [None]
  - PNEUMONIA [None]
  - ANAEMIA [None]
  - BRONCHITIS [None]
  - GASTRITIS [None]
  - ASTHENIA [None]
  - CHEST PAIN [None]
